FAERS Safety Report 5962832-8 (Version None)
Quarter: 2008Q4

REPORT INFORMATION
  Report Type: 
  Country: None (occurrence: None)
  Receive Date: 20081124
  Receipt Date: 20081022
  Transmission Date: 20090506
  Serious: No
  Sender: FDA-Public Use
  Company Number: US-BAYER-200836471NA

PATIENT
  Age: 45 Year
  Sex: Male

DRUGS (4)
  1. LEVITRA [Suspect]
     Indication: ERECTILE DYSFUNCTION
     Dosage: UNIT DOSE: 10 MG
     Route: 048
     Dates: start: 20080801
  2. DIOVAN HCT [Concomitant]
     Indication: HYPERTENSION
  3. TYLENOL (CAPLET) [Concomitant]
     Indication: HEADACHE
  4. IBUPROFEN TABLETS [Concomitant]
     Indication: HEADACHE

REACTIONS (2)
  - HEADACHE [None]
  - SPONTANEOUS PENILE ERECTION [None]
